FAERS Safety Report 10201721 (Version 1)
Quarter: 2014Q2

REPORT INFORMATION
  Report Type: Spontaneous
  Country: US (occurrence: US)
  Receive Date: 20140528
  Receipt Date: 20140528
  Transmission Date: 20141212
  Serious: No
  Sender: FDA-Public Use
  Company Number: US-BRISTOL-MYERS SQUIBB COMPANY-18994236

PATIENT
  Age: 58 Year
  Sex: Female
  Weight: 136.05 kg

DRUGS (1)
  1. METFORMIN HCL [Suspect]

REACTIONS (1)
  - Drug ineffective [None]
